FAERS Safety Report 15849056 (Version 2)
Quarter: 2019Q2

REPORT INFORMATION
  Report Type: Report from Study
  Country: None (occurrence: CH)
  Receive Date: 20190121
  Receipt Date: 20190403
  Transmission Date: 20190711
  Serious: Yes (Hospitalization)
  Sender: FDA-Public Use
  Company Number: CH-ABBVIE-19S-151-2629621-00

PATIENT
  Sex: Male

DRUGS (5)
  1. DUODOPA [Suspect]
     Active Substance: CARBIDOPA\LEVODOPA
     Dosage: MD: 6 ML, CR DAY: 3.8 ML/H, CR NIGHT: 2.2 ML/H, ED 1ML,24 H THERAPY
     Route: 050
     Dates: start: 20190115, end: 20190118
  2. DUODOPA [Suspect]
     Active Substance: CARBIDOPA\LEVODOPA
     Indication: PARKINSON^S DISEASE
     Dosage: 24 H THERAPY
     Route: 050
     Dates: start: 20171115, end: 20181005
  3. DUODOPA [Suspect]
     Active Substance: CARBIDOPA\LEVODOPA
     Dosage: MD: 6 ML, CR DAY: 3.8 ML/H, CR NIGHT: 2.2 ML/H, ED 1 ML
     Route: 050
     Dates: start: 20181108, end: 20190115
  4. DUODOPA [Suspect]
     Active Substance: CARBIDOPA\LEVODOPA
     Dosage: MD: 6 ML, CR DAY: 3.7 ML/H, CR NIGHT: 2.2 ML/H, ED: 1 ML
     Route: 050
     Dates: start: 20181005, end: 20181108
  5. DUODOPA [Suspect]
     Active Substance: CARBIDOPA\LEVODOPA
     Dosage: MD: 6 ML, CR DAY: 3.8 ML/H, CRNIGHT: 2.2 ML/H, ED: 1 ML 24 H THERAPY
     Route: 050
     Dates: start: 20190118

REACTIONS (2)
  - Device dislocation [Recovered/Resolved]
  - Off label use [Recovered/Resolved]
